FAERS Safety Report 7672507-5 (Version None)
Quarter: 2011Q3

REPORT INFORMATION
  Report Type: 
  Country: None (occurrence: None)
  Receive Date: 20110809
  Receipt Date: 20110729
  Transmission Date: 20111222
  Serious: Yes (Death, Life-Threatening, Hospitalization, Other)
  Sender: FDA-Public Use
  Company Number: FR-BAYER-2011-051292

PATIENT
  Age: 20 Year
  Sex: Male

DRUGS (5)
  1. NEULASTA [Suspect]
     Indication: CHEMOTHERAPY
     Dosage: 6 MG, UNK
     Route: 058
     Dates: start: 20100616, end: 20101103
  2. DOXORUBICIN HCL [Suspect]
     Dosage: UNK
     Route: 042
     Dates: start: 20100616, end: 20101103
  3. DACARBAZINE [Suspect]
     Dosage: UNK
     Route: 042
     Dates: start: 20100616, end: 20101103
  4. BLEOMYCIN SULFATE [Suspect]
     Dosage: UNK
     Route: 042
     Dates: start: 20100616, end: 20101103
  5. VINBLASTINE SULFATE [Suspect]
     Dosage: UNK
     Route: 042
     Dates: start: 20100616, end: 20101103

REACTIONS (6)
  - INTERSTITIAL LUNG DISEASE [None]
  - PULMONARY FIBROSIS [None]
  - SEPTIC SHOCK [None]
  - STAPHYLOCOCCAL SEPSIS [None]
  - PNEUMOTHORAX [None]
  - MULTI-ORGAN FAILURE [None]
